FAERS Safety Report 8023679-4 (Version None)
Quarter: 2012Q1

REPORT INFORMATION
  Report Type: 
  Country: None (occurrence: None)
  Receive Date: 20120105
  Receipt Date: 20100615
  Transmission Date: 20120608
  Serious: Yes (Other)
  Sender: FDA-Public Use
  Company Number: TR-BAYER-2011-120543

PATIENT
  Age: 30 Year
  Sex: Female
  Weight: 54 kg

DRUGS (1)
  1. YAZ [Suspect]
     Dosage: UNK
     Route: 048
     Dates: start: 20100514, end: 20100614

REACTIONS (6)
  - SKIN FISSURES [None]
  - PRURITUS [None]
  - VERTIGO [None]
  - SYNCOPE [None]
  - LACRIMATION INCREASED [None]
  - NAUSEA [None]
